FAERS Safety Report 4636727-6 (Version None)
Quarter: 2005Q2

REPORT INFORMATION
  Report Type: 
  Country: None (occurrence: None)
  Receive Date: 20050414
  Receipt Date: 20050316
  Transmission Date: 20051028
  Serious: Yes (Other)
  Sender: FDA-Public Use
  Company Number: 2005046412

PATIENT
  Sex: Female

DRUGS (11)
  1. LINEZOLID TABLET (LINEZOLID) [Suspect]
     Indication: ENDOCARDITIS BACTERIAL
     Dosage: 1200 MG (600 MG, BID INTERVAL: EVERYDAY), ORAL
     Route: 048
     Dates: start: 20020101
  2. RIFAMPICIN [Concomitant]
  3. ENALAPRIL MALEATE [Concomitant]
  4. FUROSEMIDE [Concomitant]
  5. DIGOXIN [Concomitant]
  6. ASPIRIN [Concomitant]
  7. SPIRONOLACTONE [Concomitant]
  8. CARVEDILOL [Concomitant]
  9. OMEPRAZOLE [Concomitant]
  10. DIMENHYDRINATE [Concomitant]
  11. CARBAMAZEPINE [Concomitant]

REACTIONS (5)
  - BLISTER [None]
  - CEREBRAL ARTERY EMBOLISM [None]
  - CONVULSION [None]
  - ILL-DEFINED DISORDER [None]
  - PYREXIA [None]
